FAERS Safety Report 9133539 (Version 6)
Quarter: 2017Q4

REPORT INFORMATION
  Report Type: Spontaneous
  Country: US (occurrence: US)
  Receive Date: 20130301
  Receipt Date: 20171117
  Transmission Date: 20180321
  Serious: Yes (Hospitalization, Disabling, Other)
  Sender: FDA-Public Use
  Company Number: US-009507513-1303USA000348

PATIENT
  Sex: Female
  Weight: 74.38 kg

DRUGS (5)
  1. FOSAMAX [Suspect]
     Active Substance: ALENDRONATE SODIUM
     Indication: OSTEOPENIA
     Dosage: 10 MG, QD
     Route: 048
  2. FOSAMAX [Suspect]
     Active Substance: ALENDRONATE SODIUM
     Dosage: 70 MG, QW
     Route: 048
     Dates: end: 20110622
  3. ALENDRONATE SODIUM. [Suspect]
     Active Substance: ALENDRONATE SODIUM
     Indication: OSTEOPENIA
     Dosage: 70 MG, UNK
     Dates: start: 20080623, end: 20110222
  4. CALCIUM (UNSPECIFIED) (+) VITAMIN D (UNSPECIFIED) [Concomitant]
     Active Substance: CALCIUM CARBONATE\VITAMIN D
     Indication: OSTEOPOROSIS
     Dosage: BID
  5. FOSAMAX [Suspect]
     Active Substance: ALENDRONATE SODIUM
     Indication: OSTEOPOROSIS
     Dosage: 35 MG, QW
     Route: 048

REACTIONS (60)
  - Body height decreased [Unknown]
  - Joint injury [Unknown]
  - Spinal compression fracture [Unknown]
  - Drug ineffective [Unknown]
  - Stress fracture [Unknown]
  - Road traffic accident [Unknown]
  - Spinal compression fracture [Not Recovered/Not Resolved]
  - Hyperparathyroidism secondary [Unknown]
  - Anaemia postoperative [Recovering/Resolving]
  - Constipation [Unknown]
  - Nausea [Unknown]
  - Diarrhoea [Unknown]
  - Iron deficiency [Unknown]
  - Oestrogen deficiency [Unknown]
  - Arthralgia [Not Recovered/Not Resolved]
  - Low turnover osteopathy [Not Recovered/Not Resolved]
  - Insomnia [Unknown]
  - Eye infection [Unknown]
  - Hypokalaemia [Unknown]
  - Stress [Unknown]
  - Drug intolerance [Unknown]
  - Skin abrasion [Unknown]
  - Vomiting [Unknown]
  - Dizziness [Unknown]
  - Syncope [Unknown]
  - Bacterial infection [Unknown]
  - Pain [Unknown]
  - Blood potassium decreased [Unknown]
  - Skin mass [Unknown]
  - Road traffic accident [Unknown]
  - Aspiration joint [Unknown]
  - Osteoarthritis [Unknown]
  - Bone pain [Unknown]
  - Hypercholesterolaemia [Unknown]
  - Bacterial infection [Unknown]
  - Procedural vomiting [Unknown]
  - Vitamin D deficiency [Unknown]
  - Muscle strain [Unknown]
  - Contusion [Unknown]
  - Osteoarthritis [Unknown]
  - Atelectasis [Unknown]
  - Osteoarthritis [Unknown]
  - Kyphosis [Unknown]
  - Fracture [Unknown]
  - Road traffic accident [Unknown]
  - Fall [Unknown]
  - Hypertension [Unknown]
  - Muscle strain [Unknown]
  - Pleural fibrosis [Unknown]
  - Paraesthesia [Unknown]
  - Osteoarthritis [Unknown]
  - Fall [Unknown]
  - Neck pain [Unknown]
  - Femur fracture [Recovered/Resolved]
  - Intramedullary rod insertion [Unknown]
  - Arthritis [Unknown]
  - Inflammation [Unknown]
  - Bacterial infection [Unknown]
  - Procedural nausea [Unknown]
  - Tinnitus [Unknown]

NARRATIVE: CASE EVENT DATE: 2001
